FAERS Safety Report 7331558-0 (Version None)
Quarter: 2011Q1

REPORT INFORMATION
  Report Type: 
  Country: None (occurrence: None)
  Receive Date: 20110228
  Receipt Date: 20110228
  Transmission Date: 20110831
  Serious: Yes (Life-Threatening, Hospitalization, Other)
  Sender: FDA-Public Use
  Company Number: None

PATIENT
  Sex: Male
  Weight: 36 kg

DRUGS (7)
  1. HUMIRA [Suspect]
     Indication: CROHN'S DISEASE
     Dosage: 40 MG Q7 OR 14 DAYS SQ
     Route: 058
     Dates: start: 20070501, end: 20110201
  2. LANSOPRAZOLE [Concomitant]
  3. 6-MERCAPTOPURINE VARIOUS [Suspect]
     Indication: CROHN'S DISEASE
     Dosage: 50 MG DAILY PO
     Route: 048
     Dates: start: 20090101, end: 20110201
  4. MESALAMIN [Concomitant]
  5. METRONIDAZOLE [Concomitant]
  6. BUDESONIDE [Concomitant]
  7. LOMOTIL [Concomitant]

REACTIONS (3)
  - VENOUS THROMBOSIS [None]
  - PERICARDIAL EFFUSION [None]
  - T-CELL LYMPHOMA [None]
